FAERS Safety Report 5021019-6 (Version None)
Quarter: 2006Q2

REPORT INFORMATION
  Report Type: 
  Country: None (occurrence: None)
  Receive Date: 20060606
  Receipt Date: 20060606
  Transmission Date: 20061013
  Serious: No
  Sender: FDA-Public Use
  Company Number: None

PATIENT
  Sex: Male
  Weight: 127.3 kg

DRUGS (2)
  1. GEMCITABINE [Suspect]
     Indication: OESOPHAGEAL CARCINOMA
     Dosage: 1380 MG D1, D8 IV
     Route: 042
     Dates: start: 20060517, end: 20060524
  2. CAPECITABINE 500 MG/M2 [Suspect]
     Indication: OESOPHAGEAL CARCINOMA
     Dosage: 1150 MG BID X 14 DAYS PO
     Route: 048
     Dates: start: 20060517, end: 20060530

REACTIONS (4)
  - ABDOMINAL DISTENSION [None]
  - ABDOMINAL PAIN [None]
  - CONDITION AGGRAVATED [None]
  - METASTASES TO LIVER [None]
